FAERS Safety Report 6854483-8 (Version None)
Quarter: 2010Q3

REPORT INFORMATION
  Report Type: 
  Country: None (occurrence: None)
  Receive Date: 20100717
  Receipt Date: 20080107
  Transmission Date: 20110219
  Serious: No
  Sender: FDA-Public Use
  Company Number: US-PFIZER INC-2008003020

PATIENT
  Sex: Female
  Weight: 88.636 kg

DRUGS (4)
  1. CHANTIX [Suspect]
     Dates: start: 20080101
  2. SULFASALAZINE [Concomitant]
  3. IMURAN [Concomitant]
  4. TRILEPTAL [Concomitant]

REACTIONS (2)
  - DIZZINESS [None]
  - IRRITABILITY [None]
